FAERS Safety Report 14267214 (Version 1)
Quarter: 2017Q4

REPORT INFORMATION
  Report Type: Spontaneous
  Country: US (occurrence: None)
  Receive Date: 20171208
  Receipt Date: 20171208
  Transmission Date: 20180321
  Serious: Yes (Other)
  Sender: FDA-Public Use
  Company Number: None

PATIENT
  Age: 62 Year
  Sex: Female
  Weight: 54.43 kg

DRUGS (2)
  1. PROLIA [Suspect]
     Active Substance: DENOSUMAB
  2. CENTRUM [Concomitant]
     Active Substance: VITAMINS

REACTIONS (2)
  - Impaired work ability [None]
  - Musculoskeletal stiffness [None]

NARRATIVE: CASE EVENT DATE: 20140401
